FAERS Safety Report 4652668-2 (Version None)
Quarter: 2005Q2

REPORT INFORMATION
  Report Type: 
  Country: None (occurrence: None)
  Receive Date: 20050502
  Receipt Date: 20050422
  Transmission Date: 20051028
  Serious: Yes (Other)
  Sender: FDA-Public Use
  Company Number: 2005064780

PATIENT
  Sex: Male

DRUGS (3)
  1. CARDURA [Suspect]
     Indication: ILL-DEFINED DISORDER
     Dosage: (8 MG), ORAL
     Route: 048
  2. AMLODIPINE [Suspect]
     Indication: ILL-DEFINED DISORDER
     Dosage: (10 MG), ORAL
     Route: 048
  3. ATENOLOL [Suspect]
     Indication: ILL-DEFINED DISORDER

REACTIONS (2)
  - BLOOD PRESSURE INCREASED [None]
  - HYPOKALAEMIA [None]
